FAERS Safety Report 24597562 (Version 2)
Quarter: 2025Q1

REPORT INFORMATION
  Report Type: Spontaneous
  Country: US (occurrence: US)
  Receive Date: 20241110
  Receipt Date: 20250110
  Transmission Date: 20250409
  Serious: No
  Sender: SANOFI AVENTIS
  Company Number: US-SA-2024SA303329

PATIENT
  Age: 78 Year
  Sex: Male

DRUGS (3)
  1. DUPIXENT [Suspect]
     Active Substance: DUPILUMAB
     Indication: Nasal polyps
     Dosage: 300 MG, Q4W
     Route: 058
     Dates: start: 2024, end: 2024
  2. DUPIXENT [Suspect]
     Active Substance: DUPILUMAB
     Dosage: 300 MG, QOW
     Route: 058
     Dates: start: 2024, end: 20241201
  3. DUPIXENT [Suspect]
     Active Substance: DUPILUMAB
     Dosage: 300 MG, QOW
     Route: 058

REACTIONS (12)
  - Visual impairment [Unknown]
  - Constipation [Recovering/Resolving]
  - Fatigue [Unknown]
  - Rhinitis [Unknown]
  - Nasal congestion [Unknown]
  - Nasal discharge discolouration [Unknown]
  - Condition aggravated [Unknown]
  - Anosmia [Unknown]
  - Product dose omission issue [Unknown]
  - Diarrhoea [Unknown]
  - Arthralgia [Unknown]
  - Inappropriate schedule of product administration [Unknown]

NARRATIVE: CASE EVENT DATE: 20240101
